FAERS Safety Report 9089508 (Version 2)
Quarter: 2013Q1

REPORT INFORMATION
  Report Type: Spontaneous
  Country: US (occurrence: US)
  Receive Date: 20130201
  Receipt Date: 20130305
  Transmission Date: 20140127
  Serious: No
  Sender: FDA-Public Use
  Company Number: US-PFIZER INC-2013038986

PATIENT
  Age: 79 Year
  Sex: Male
  Weight: 65.76 kg

DRUGS (2)
  1. NICOTROL INHALER [Suspect]
     Indication: SMOKING CESSATION THERAPY
     Dosage: UNK
     Dates: start: 20130129
  2. SYMBICORT [Concomitant]
     Dosage: UNK

REACTIONS (2)
  - Feeling jittery [Unknown]
  - Drug ineffective [Unknown]
